FAERS Safety Report 13587189 (Version 4)
Quarter: 2017Q2

REPORT INFORMATION
  Report Type: Spontaneous
  Country: IT (occurrence: IT)
  Receive Date: 20170526
  Receipt Date: 20170620
  Transmission Date: 20170830
  Serious: Yes (Hospitalization)
  Sender: FDA-Public Use
  Company Number: PHHY2017IT074876

PATIENT
  Age: 75 Year
  Sex: Male
  Weight: 75 kg

DRUGS (12)
  1. LANTUS [Concomitant]
     Active Substance: INSULIN GLARGINE
     Indication: DIABETES MELLITUS
     Dosage: 10 UNITS, UNK
     Route: 058
  2. TORVAST [Concomitant]
     Active Substance: ATORVASTATIN
     Indication: HYPERCHOLESTEROLAEMIA
     Dosage: 40 MG, UNK
     Route: 048
  3. TAMSULOSIN TEVA [Concomitant]
     Active Substance: TAMSULOSIN
     Indication: BENIGN PROSTATIC HYPERPLASIA
     Dosage: 0.4 MG, UNK
     Route: 048
  4. LASIX [Concomitant]
     Active Substance: FUROSEMIDE
     Indication: DIURETIC THERAPY
     Dosage: 100 MG, UNK
     Route: 048
  5. XARELTO [Interacting]
     Active Substance: RIVAROXABAN
     Indication: ATRIAL FIBRILLATION
     Dosage: 20 MG, QD
     Route: 048
     Dates: start: 20150224, end: 20170421
  6. XARELTO [Interacting]
     Active Substance: RIVAROXABAN
     Dosage: 15 MG, UNK
     Route: 065
     Dates: start: 20170421
  7. HUMALOG [Concomitant]
     Active Substance: INSULIN LISPRO
     Indication: DIABETES MELLITUS
     Dosage: 18 UNITS, UNK
     Route: 058
  8. VENITRIN [Concomitant]
     Active Substance: NITROGLYCERIN
     Indication: ANGINA PECTORIS
     Dosage: 10 MG, UNK
     Route: 062
  9. LOBIVON [Concomitant]
     Active Substance: NEBIVOLOL HYDROCHLORIDE
     Indication: HYPERTENSION
     Dosage: 2.5 MG, UNK
     Route: 048
  10. RANEXA [Concomitant]
     Active Substance: RANOLAZINE
     Indication: ATRIAL FIBRILLATION
     Dosage: 750 MG, UNK
     Route: 048
  11. RAMIPRIL. [Suspect]
     Active Substance: RAMIPRIL
     Indication: HYPERTENSION
     Dosage: 10 MG, QD
     Route: 048
  12. KANRENOL [Interacting]
     Active Substance: CANRENOATE POTASSIUM
     Indication: DIURETIC THERAPY
     Dosage: 25 MG, QD
     Route: 048

REACTIONS (4)
  - Blood creatinine increased [Recovered/Resolved]
  - Pyrexia [Recovered/Resolved]
  - Drug interaction [Recovered/Resolved]
  - Renal injury [Recovered/Resolved]

NARRATIVE: CASE EVENT DATE: 20170128
